FAERS Safety Report 4780626-6 (Version None)
Quarter: 2005Q3

REPORT INFORMATION
  Report Type: 
  Country: None (occurrence: None)
  Receive Date: 20050926
  Receipt Date: 20050908
  Transmission Date: 20060218
  Serious: No
  Sender: FDA-Public Use
  Company Number: DSA_60512_2005

PATIENT
  Age: 40 Year
  Sex: Female

DRUGS (6)
  1. MIGRANAL [Suspect]
     Indication: MIGRAINE
     Dosage: 1 DF PRN IN
     Route: 055
  2. MIGRANAL [Suspect]
     Indication: MIGRAINE
     Dosage: 1 DF PRN IN
     Route: 055
  3. ZOCOR [Concomitant]
  4. CYMBALTA [Concomitant]
  5. DEPAKOTE [Concomitant]
  6. PRILOSEC [Concomitant]

REACTIONS (3)
  - BURNING SENSATION [None]
  - LATEX ALLERGY [None]
  - THROAT TIGHTNESS [None]
